FAERS Safety Report 8041687-4 (Version None)
Quarter: 2012Q1

REPORT INFORMATION
  Report Type: 
  Country: None (occurrence: None)
  Receive Date: 20120112
  Receipt Date: 20120109
  Transmission Date: 20120608
  Serious: No
  Sender: FDA-Public Use
  Company Number: US-PFIZER INC-2012007509

PATIENT
  Sex: Female

DRUGS (4)
  1. ZOLOFT [Suspect]
     Indication: MENOPAUSE
     Dosage: 50 MG, DAILY
     Dates: start: 20110101, end: 20120101
  2. KLONOPIN [Suspect]
     Indication: SLEEP DISORDER
     Dosage: 1 MG, DAILY
     Dates: start: 20090101
  3. ZOLOFT [Suspect]
     Dosage: UNK
     Dates: start: 20120101
  4. KLONOPIN [Suspect]
     Indication: PANIC ATTACK

REACTIONS (3)
  - HYPERHIDROSIS [None]
  - HOT FLUSH [None]
  - INSOMNIA [None]
